FAERS Safety Report 4815181-5 (Version None)
Quarter: 2005Q4

REPORT INFORMATION
  Report Type: 
  Country: None (occurrence: None)
  Receive Date: 20051028
  Receipt Date: 20050722
  Transmission Date: 20060501
  Serious: Yes (Hospitalization)
  Sender: FDA-Public Use
  Company Number: US-MERCK-0507USA03855

PATIENT
  Age: 48 Year
  Sex: Female
  Weight: 175 kg

DRUGS (18)
  1. LEXAPRO [Concomitant]
     Route: 065
  2. AVANDIA [Concomitant]
     Route: 065
  3. GLUCOPHAGE [Concomitant]
     Route: 065
  4. VIOXX [Suspect]
     Indication: MENISCUS LESION
     Route: 048
     Dates: start: 20030624, end: 20040301
  5. VIOXX [Suspect]
     Route: 048
     Dates: start: 20030624, end: 20040301
  6. ASPIRIN [Concomitant]
     Route: 065
     Dates: start: 20000101
  7. ACTOS [Concomitant]
     Route: 065
  8. AMARYL [Concomitant]
     Route: 065
  9. CARTIA (DILTIAZEM HYDROCHLORIDE) [Concomitant]
     Indication: HYPERTENSION
     Route: 065
     Dates: start: 20000101
  10. SPIRONOLACTONE [Concomitant]
     Route: 065
  11. ZOCOR [Concomitant]
     Indication: BLOOD CHOLESTEROL INCREASED
     Route: 065
     Dates: start: 20030101
  12. METFORMIN HYDROCHLORIDE [Concomitant]
     Route: 065
  13. DIOVAN [Concomitant]
     Indication: HYPERTENSION
     Route: 065
     Dates: start: 20000101
  14. ALPRAZOLAM [Concomitant]
     Route: 065
  15. STARLIX [Concomitant]
     Route: 065
  16. EFFEXOR [Concomitant]
     Route: 065
     Dates: end: 20040101
  17. CELEBREX [Concomitant]
     Route: 065
     Dates: start: 20030304, end: 20030501
  18. NAPROXEN [Concomitant]
     Route: 065

REACTIONS (4)
  - CHEST PAIN [None]
  - INSOMNIA [None]
  - MYOCARDIAL INFARCTION [None]
  - SLEEP APNOEA SYNDROME [None]
